FAERS Safety Report 9917411 (Version 1)
Quarter: 2014Q1

REPORT INFORMATION
  Report Type: Spontaneous
  Country: US (occurrence: US)
  Receive Date: 20140221
  Receipt Date: 20140221
  Transmission Date: 20141002
  Serious: No
  Sender: FDA-Public Use
  Company Number: US-PFIZER INC-2014047798

PATIENT
  Sex: Female

DRUGS (9)
  1. NORVASC [Suspect]
     Dosage: UNK
  2. CIPRO [Suspect]
     Dosage: UNK
  3. DOLOBID [Suspect]
     Dosage: UNK
  4. TRIMPEX [Suspect]
     Dosage: UNK
  5. VOLTAREN [Suspect]
     Dosage: UNK
  6. TETANUS [Suspect]
     Dosage: UNK
  7. ZIAC [Suspect]
     Dosage: UNK
  8. BRIMONIDINE [Suspect]
     Dosage: UNK
  9. MACRODANTIN [Suspect]
     Dosage: UNK

REACTIONS (1)
  - Drug hypersensitivity [Unknown]
